FAERS Safety Report 9248639 (Version 1)
Quarter: 2013Q2

REPORT INFORMATION
  Report Type: Spontaneous
  Country: US (occurrence: US)
  Receive Date: 20130423
  Receipt Date: 20130423
  Transmission Date: 20140414
  Serious: Yes (Hospitalization)
  Sender: FDA-Public Use
  Company Number: US-BAYER-2013-050240

PATIENT
  Age: 43 Year
  Sex: Female
  Weight: 55.78 kg

DRUGS (6)
  1. BEYAZ [Suspect]
  2. YAZ [Suspect]
  3. SPIRONOLACTONE [Concomitant]
     Dosage: 100 MG, UNK
  4. BUPROPION [Concomitant]
     Dosage: 300 MG, UNK
  5. WELLBUTRIN XL [Concomitant]
  6. ADVIL [Concomitant]

REACTIONS (1)
  - Pulmonary embolism [None]
